FAERS Safety Report 13190442 (Version 2)
Quarter: 2017Q1

REPORT INFORMATION
  Report Type: Spontaneous
  Country: US (occurrence: US)
  Receive Date: 20170206
  Receipt Date: 20170220
  Transmission Date: 20170428
  Serious: Yes (Life-Threatening, Hospitalization, Other)
  Sender: FDA-Public Use
  Company Number: US-009507513-1702USA000306

PATIENT
  Age: 54 Year
  Sex: Male
  Weight: 95 kg

DRUGS (29)
  1. LR PREMIX INFUSION [Concomitant]
     Dosage: 500 ML, ONCE
     Route: 042
     Dates: start: 20161210, end: 20161210
  2. MOTRIN [Concomitant]
     Active Substance: IBUPROFEN
     Dosage: UNK
     Route: 048
  3. MARCAINE WITH EPINEPHRINE [Concomitant]
     Active Substance: BUPIVACAINE HYDROCHLORIDE\EPINEPHRINE BITARTRATE
     Dosage: UNK
     Dates: start: 20161210
  4. DIPRIVAN [Concomitant]
     Active Substance: PROPOFOL
     Dosage: STRENGTH 10 MG/ML, 200 MCG, ONCE
     Route: 042
     Dates: start: 20161210, end: 20161210
  5. MORPHINE [Concomitant]
     Active Substance: MORPHINE
     Dosage: 10 MG/ML
     Dates: start: 20161210
  6. BRIDION [Suspect]
     Active Substance: SUGAMMADEX
     Indication: ANAESTHESIA REVERSAL
     Dosage: STRENGTH 100 MG/ML, 150 MG, ONCE
     Route: 042
     Dates: start: 20161210, end: 20161210
  7. LIDOCAINE HYDROCHLORIDE. [Concomitant]
     Active Substance: LIDOCAINE HYDROCHLORIDE
     Dosage: PF 100 MG/5 ML (MG), 80 MG, ONCE
     Route: 042
     Dates: start: 20161210, end: 20161210
  8. EPHEDRINE. [Concomitant]
     Active Substance: EPHEDRINE
     Dosage: STRENGTH 50 MG/ML, 10 MG, ONCE
     Route: 042
     Dates: start: 20161210, end: 20161210
  9. ZOFRAN [Concomitant]
     Active Substance: ONDANSETRON HYDROCHLORIDE
     Dosage: STRENGTH 2 MG/ML (MG), 4 MG,ONCE
     Route: 042
     Dates: start: 20161210, end: 20161210
  10. SUBLIMAZE [Concomitant]
     Active Substance: FENTANYL CITRATE
     Dosage: STRENGTH 50 MCG/ML, 200 MCG
     Dates: start: 20161210
  11. EPHEDRINE. [Concomitant]
     Active Substance: EPHEDRINE
     Dosage: STRENGTH 50 MG/ML, 5 MG, ONCE
     Route: 042
     Dates: start: 20161210, end: 20161210
  12. OFIRMEV [Concomitant]
     Active Substance: ACETAMINOPHEN
     Dosage: STRENGTH 10 MG/ML (MG), 1.000 MG, ONCE
     Route: 042
     Dates: start: 20161210, end: 20161210
  13. VERSED [Concomitant]
     Active Substance: MIDAZOLAM HYDROCHLORIDE
     Dosage: STRENGTH 1 MG//ML (MG), 2 MG, ONCE
     Route: 042
     Dates: start: 20161210, end: 20161210
  14. SUBLIMAZE [Concomitant]
     Active Substance: FENTANYL CITRATE
     Dosage: STRENGTH 50 MCG/ML (MG), 50 MCG, ONCE
     Route: 042
     Dates: start: 20161210, end: 20161210
  15. LIPITOR [Concomitant]
     Active Substance: ATORVASTATIN CALCIUM
     Dosage: UNK
     Route: 048
  16. DILAUDID [Concomitant]
     Active Substance: HYDROMORPHONE HYDROCHLORIDE
     Dosage: 1 MG/ML
  17. ALBUTEROL SULFATE. [Concomitant]
     Active Substance: ALBUTEROL SULFATE
     Dosage: STRENGTH 90 MCG PER INHALATION, ONCE
     Route: 055
     Dates: start: 20161210, end: 20161210
  18. PRILOSEC [Concomitant]
     Active Substance: OMEPRAZOLE MAGNESIUM
     Dosage: UNK
     Route: 048
  19. NS [Concomitant]
     Active Substance: SODIUM CHLORIDE
     Dosage: 1000 ML
  20. LR PREMIX INFUSION [Concomitant]
     Dosage: 400 ML, UNK
     Route: 042
     Dates: start: 20161210
  21. ASPIRIN. [Concomitant]
     Active Substance: ASPIRIN
     Dosage: UNK
     Route: 048
     Dates: start: 20161220
  22. ZEMURON [Concomitant]
     Active Substance: ROCURONIUM BROMIDE
     Dosage: STRENGTH 10 MG/ML (MG), 25 MG, ONCE
     Route: 042
     Dates: start: 20161210, end: 20161210
  23. DEXAMETHASONE. [Concomitant]
     Active Substance: DEXAMETHASONE
     Dosage: STRENGTH 4 MG/ML (MG), 8 MG, ONCE
     Route: 042
     Dates: start: 20161210, end: 20161210
  24. ANCEF [Concomitant]
     Active Substance: CEFAZOLIN SODIUM
     Dosage: STR 1 G IN ISO-OSMOTIC 50 ML DUPLEX IVPB (G) DOSING WEIGHT 84.8, 1 G, ONCE
     Route: 042
     Dates: start: 20161210, end: 20161210
  25. PROVENTIL [Concomitant]
     Active Substance: ALBUTEROL
     Dosage: 2.5 MG/0.5ML, ONCE
     Dates: start: 20161210, end: 20161210
  26. CELEXA [Concomitant]
     Active Substance: CITALOPRAM HYDROBROMIDE
     Dosage: UNK
     Route: 048
  27. PRINIVIL [Concomitant]
     Active Substance: LISINOPRIL
     Dosage: UNK
     Route: 048
  28. EPHEDRINE. [Concomitant]
     Active Substance: EPHEDRINE
     Dosage: STRENGTH 50 MG/ML (MG), 10 MG, ONCE
     Route: 042
     Dates: start: 20161210, end: 20161210
  29. ANECTINE [Concomitant]
     Active Substance: SUCCINYLCHOLINE CHLORIDE
     Dosage: STRENGTH 20 MG/ML (MG), 160 MG, ONCE
     Route: 042
     Dates: start: 20161210, end: 20161210

REACTIONS (2)
  - Bradycardia [Recovered/Resolved]
  - Presyncope [Recovered/Resolved]

NARRATIVE: CASE EVENT DATE: 20161210
